FAERS Safety Report 16539108 (Version 2)
Quarter: 2019Q4

REPORT INFORMATION
  Report Type: Spontaneous
  Country: US (occurrence: US)
  Receive Date: 20190708
  Receipt Date: 20191018
  Transmission Date: 20200122
  Serious: Yes (Other)
  Sender: FDA-Public Use
  Company Number: US-AMGEN-USASP2019106256

PATIENT
  Age: 85 Year
  Sex: Female

DRUGS (1)
  1. PROLIA [Suspect]
     Active Substance: DENOSUMAB
     Indication: OSTEOPOROSIS POSTMENOPAUSAL
     Dosage: 60 MILLIGRAM, Q6MO
     Route: 065
     Dates: start: 2013

REACTIONS (9)
  - Glucose tolerance impaired [Unknown]
  - Nausea [Unknown]
  - Back pain [Unknown]
  - Bone pain [Unknown]
  - Weight decreased [Unknown]
  - Skin cancer [Unknown]
  - Fall [Unknown]
  - Arthropathy [Unknown]
  - Malignant melanoma [Unknown]

NARRATIVE: CASE EVENT DATE: 2019
